FAERS Safety Report 13554981 (Version 3)
Quarter: 2017Q2

REPORT INFORMATION
  Report Type: Report from Study
  Country: AU (occurrence: AU)
  Receive Date: 20170517
  Receipt Date: 20170525
  Transmission Date: 20170830
  Serious: Yes (Hospitalization)
  Sender: FDA-Public Use
  Company Number: AU-BIOGEN-2017BI00402502

PATIENT
  Age: 53 Year
  Sex: Female

DRUGS (1)
  1. TYSABRI [Suspect]
     Active Substance: NATALIZUMAB
     Indication: MULTIPLE SCLEROSIS
     Dosage: INFUSED OVER 1 HOUR
     Route: 042
     Dates: start: 20160527, end: 20170501

REACTIONS (8)
  - Headache [Recovered/Resolved]
  - Chest pain [Recovered/Resolved]
  - Duodenitis [Unknown]
  - Dyspnoea [Recovered/Resolved]
  - Amnesia [Recovered/Resolved]
  - Cerebral haemorrhage [Unknown]
  - Nausea [Recovered/Resolved]
  - Gastric polyps [Unknown]

NARRATIVE: CASE EVENT DATE: 20170316
